FAERS Safety Report 8602318 (Version 3)
Quarter: 2014Q1

REPORT INFORMATION
  Report Type: Spontaneous
  Country: US (occurrence: US)
  Receive Date: 20120607
  Receipt Date: 20140131
  Transmission Date: 20141002
  Serious: Yes (Hospitalization, Disabling)
  Sender: FDA-Public Use
  Company Number: US-ASTRAZENECA-2012SE34686

PATIENT
  Age: 53 Year
  Sex: Female
  Weight: 86.2 kg

DRUGS (29)
  1. NEXIUM [Suspect]
     Indication: GASTRIC DISORDER
     Route: 048
  2. NEXIUM [Suspect]
     Indication: GASTROOESOPHAGEAL REFLUX DISEASE
     Route: 048
  3. NEXIUM [Suspect]
     Indication: GASTRIC DISORDER
     Dosage: ONCE DAILY
     Route: 048
     Dates: start: 2003
  4. NEXIUM [Suspect]
     Indication: GASTROOESOPHAGEAL REFLUX DISEASE
     Dosage: ONCE DAILY
     Route: 048
     Dates: start: 2003
  5. OMEPRAZOLE [Suspect]
     Dosage: ONCE DAILY
     Route: 048
  6. PRILOSEC OTC [Suspect]
     Dosage: ONCE DAILY
     Route: 048
  7. PREVACID [Concomitant]
  8. ACIPHEX [Concomitant]
  9. TUMS [Concomitant]
  10. ROLAIDS [Concomitant]
  11. ALKA SELTZER [Concomitant]
  12. POTASSIUM [Concomitant]
     Indication: MUSCLE SPASMS
     Dosage: 20 ME
  13. DETROL [Concomitant]
     Indication: BLADDER DISORDER
  14. SAVELLA [Concomitant]
     Indication: BLADDER DISORDER
     Dates: start: 200808, end: 2013
  15. LOSARTAN/HCT [Concomitant]
     Indication: BLOOD PRESSURE
  16. DOXEPIN [Concomitant]
     Indication: INSOMNIA
  17. TOPIRAMATE [Concomitant]
     Indication: ARTHRITIS
  18. SALSALATE [Concomitant]
     Indication: ARTHRITIS
  19. SULFASALAZIN [Concomitant]
     Indication: ARTHRITIS
  20. CELEXA [Concomitant]
     Indication: ARTHRITIS
  21. CELEXA [Concomitant]
     Indication: INSOMNIA
  22. CITALOPRAM [Concomitant]
     Indication: ARTHRITIS
  23. CITALOPRAM [Concomitant]
     Indication: INSOMNIA
  24. AMBIEN [Concomitant]
  25. METOCLOPRAMIDE [Concomitant]
  26. ROPUSULID [Concomitant]
  27. FRLENTMAHA [Concomitant]
     Indication: ARTHRITIS
  28. FEUXRIL [Concomitant]
     Indication: ARTHRITIS
  29. FEUXRIL [Concomitant]
     Indication: INSOMNIA

REACTIONS (15)
  - Musculoskeletal pain [Unknown]
  - Pain in extremity [Unknown]
  - Back pain [Unknown]
  - Impaired work ability [Not Recovered/Not Resolved]
  - Depression [Unknown]
  - Osteoporosis [Unknown]
  - Arthritis [Unknown]
  - Bone density abnormal [Unknown]
  - Multiple fractures [Unknown]
  - Bone disorder [Unknown]
  - Bone pain [Unknown]
  - Carpal tunnel syndrome [Unknown]
  - Rheumatoid arthritis [Unknown]
  - Osteoarthritis [Unknown]
  - Stress fracture [Unknown]
